FAERS Safety Report 4764046-6 (Version None)
Quarter: 2005Q3

REPORT INFORMATION
  Report Type: 
  Country: None (occurrence: None)
  Receive Date: 20050906
  Receipt Date: 20050829
  Transmission Date: 20060218
  Serious: Yes (Disabling)
  Sender: FDA-Public Use
  Company Number: 2005121508

PATIENT
  Age: 58 Year
  Sex: Male
  Weight: 54.4316 kg

DRUGS (3)
  1. NEURONTIN [Suspect]
     Indication: NERVE DEGENERATION
     Dosage: 900 MG (300 MG, 3 IN 1 D)
  2. ALL OTHER THERAPEUTIC PRODUCTS (ALL OTHER THERAPEUTIC PRODUCTS) [Concomitant]
  3. ZYPREXA [Concomitant]

REACTIONS (5)
  - BLOOD CHOLESTEROL INCREASED [None]
  - INCORRECT DOSE ADMINISTERED [None]
  - INSOMNIA [None]
  - LOSS OF EMPLOYMENT [None]
  - MENTAL DISORDER [None]
